FAERS Safety Report 18467019 (Version 1)
Quarter: 2020Q4

REPORT INFORMATION
  Report Type: Spontaneous
  Country: US (occurrence: US)
  Receive Date: 20201104
  Receipt Date: 20201104
  Transmission Date: 20210114
  Serious: No
  Sender: FDA-Public Use
  Company Number: None

PATIENT
  Age: 51 Year
  Sex: Male
  Weight: 92 kg

DRUGS (1)
  1. BICTEGRAVIR;EMTRICITABINE;TENOFOVIR [Suspect]
     Active Substance: BICTEGRAVIR\EMTRICITABINE\TENOFOVIR ALAFENAMIDE
     Route: 048
     Dates: start: 20191115, end: 20200401

REACTIONS (10)
  - Fatigue [None]
  - Nausea [None]
  - Arthralgia [None]
  - Pain [None]
  - Vertigo [None]
  - Blood bilirubin increased [None]
  - Muscle spasms [None]
  - Dizziness [None]
  - Headache [None]
  - Blood creatine phosphokinase increased [None]

NARRATIVE: CASE EVENT DATE: 20200401
